FAERS Safety Report 16793505 (Version 2)
Quarter: 2019Q4

REPORT INFORMATION
  Report Type: Report from Study
  Country: US (occurrence: US)
  Receive Date: 20190911
  Receipt Date: 20191209
  Transmission Date: 20200122
  Serious: No
  Sender: FDA-Public Use
  Company Number: PHEH2019US037242

PATIENT
  Sex: Female

DRUGS (2)
  1. COSENTYX [Suspect]
     Active Substance: SECUKINUMAB
     Dosage: 150 MG, QW
     Route: 058
  2. COSENTYX [Suspect]
     Active Substance: SECUKINUMAB
     Indication: PSORIASIS
     Dosage: 300 MG, (QW FOR 5 WEEKS, THEN Q4W)
     Route: 058

REACTIONS (6)
  - Gout [Recovering/Resolving]
  - Joint swelling [Recovering/Resolving]
  - Skin exfoliation [Unknown]
  - Mobility decreased [Unknown]
  - Injection site pain [Unknown]
  - Peripheral swelling [Recovering/Resolving]
